FAERS Safety Report 7192515-0 (Version None)
Quarter: 2010Q4

REPORT INFORMATION
  Report Type: 
  Country: None (occurrence: None)
  Receive Date: 20101222
  Receipt Date: 20101222
  Transmission Date: 20110411
  Serious: Yes (Hospitalization)
  Sender: FDA-Public Use
  Company Number: None

PATIENT
  Age: 58 Year
  Sex: Male
  Weight: 114.6 kg

DRUGS (1)
  1. DIVALPROEX SODIUM [Suspect]
     Indication: CONVULSION
     Dosage: 750 MG AT BEDTIME PO
     Route: 048
     Dates: start: 20000323, end: 20100903

REACTIONS (2)
  - HEPATIC STEATOSIS [None]
  - PANCREATITIS [None]
